FAERS Safety Report 6347938-6 (Version None)
Quarter: 2009Q3

REPORT INFORMATION
  Report Type: 
  Country: None (occurrence: None)
  Receive Date: 20090910
  Receipt Date: 20090904
  Transmission Date: 20100115
  Serious: Yes (Other)
  Sender: FDA-Public Use
  Company Number: PHHY2009JP38073

PATIENT
  Age: 7 Year
  Sex: Female

DRUGS (1)
  1. ZADITEN [Suspect]
     Dosage: UNK
     Route: 048
     Dates: start: 20090601

REACTIONS (2)
  - ABNORMAL BEHAVIOUR [None]
  - CONVULSION [None]
